FAERS Safety Report 10591390 (Version 1)
Quarter: 2014Q4

REPORT INFORMATION
  Report Type: Spontaneous
  Country: US (occurrence: US)
  Receive Date: 20141118
  Receipt Date: 20141118
  Transmission Date: 20150529
  Serious: No
  Sender: FDA-Public Use
  Company Number: US-TEVA-523187USA

PATIENT
  Sex: Male

DRUGS (1)
  1. PARAGARD T380A [Suspect]
     Active Substance: COPPER

REACTIONS (2)
  - Pain [Recovered/Resolved]
  - Penis injury [Recovered/Resolved]

NARRATIVE: CASE EVENT DATE: 201410
